FAERS Safety Report 8932171 (Version 1)
Quarter: 2012Q4

REPORT INFORMATION
  Report Type: 
  Country: GB (occurrence: GB)
  Receive Date: 20121128
  Receipt Date: 20121128
  Transmission Date: 20130627
  Serious: Yes (Other)
  Sender: FDA-Public Use
  Company Number: GB-009507513-1211GBR010488

PATIENT
  Age: 74 Year
  Sex: Female

DRUGS (8)
  1. SIMVASTATIN [Suspect]
     Indication: BLOOD CHOLESTEROL INCREASED
     Dosage: 1tab/1day, qd
     Dates: end: 20121103
  2. LISINOPRIL [Suspect]
     Indication: BLOOD PRESSURE
     Dosage: UNK
  3. ALLOPURINOL [Suspect]
     Indication: GOUT
     Dosage: UNK
  4. FUROSEMIDE [Suspect]
     Indication: FLUID RETENTION
     Dosage: 1 tab/day,qd
  5. GLICLAZIDE [Suspect]
     Indication: ANXIETY
     Dosage: 1/1day
  6. WARFARIN [Suspect]
     Indication: COAGULATION TIME ABNORMAL
     Dosage: 5 mg, qd(2brown tablets, 1day)
  7. WARFARIN [Suspect]
     Indication: ANTICOAGULANT THERAPY
  8. ZICRON [Concomitant]
     Indication: ANXIETY
     Dosage: 1 tab/ day,qd

REACTIONS (3)
  - Hot flush [Not Recovered/Not Resolved]
  - Malaise [Not Recovered/Not Resolved]
  - Face oedema [Not Recovered/Not Resolved]
